FAERS Safety Report 4564110-0 (Version None)
Quarter: 2005Q1

REPORT INFORMATION
  Report Type: 
  Country: None (occurrence: None)
  Receive Date: 20050128
  Receipt Date: 20050117
  Transmission Date: 20050727
  Serious: Yes (Hospitalization, Other)
  Sender: FDA-Public Use
  Company Number: US-MERCK-0501USA02632

PATIENT
  Age: 44 Year
  Sex: Male
  Weight: 85 kg

DRUGS (10)
  1. VIOXX [Suspect]
     Indication: INTERVERTEBRAL DISC DEGENERATION
     Route: 048
     Dates: start: 19991203, end: 20000101
  2. VIOXX [Suspect]
     Indication: LUMBAR RADICULOPATHY
     Route: 048
     Dates: start: 19991203, end: 20000101
  3. OXYCONTIN [Concomitant]
     Route: 048
     Dates: start: 19991201, end: 20000110
  4. OXYCONTIN [Concomitant]
     Route: 048
     Dates: start: 19991201
  5. OXYCONTIN [Concomitant]
     Route: 065
     Dates: start: 20000110
  6. VICODIN [Concomitant]
     Route: 048
  7. VICODIN [Concomitant]
     Route: 048
  8. NEURONTIN [Concomitant]
     Route: 065
     Dates: start: 19991206, end: 19991220
  9. NEURONTIN [Concomitant]
     Route: 065
     Dates: start: 19991220, end: 20000110
  10. CELEBREX [Concomitant]
     Route: 065

REACTIONS (4)
  - BACK PAIN [None]
  - DIABETES MELLITUS NON-INSULIN-DEPENDENT [None]
  - HYPERTENSION [None]
  - MYOCARDIAL INFARCTION [None]
